FAERS Safety Report 24302922 (Version 1)
Quarter: 2024Q3

REPORT INFORMATION
  Report Type: Spontaneous
  Country: US (occurrence: None)
  Receive Date: 20240908
  Receipt Date: 20240908
  Transmission Date: 20241016
  Serious: Yes (unspecified)
  Sender: Public
  Company Number: None

PATIENT
  Age: 67 Year
  Sex: Male
  Weight: 112.5 kg

DRUGS (2)
  1. PRIVIGEN [Suspect]
     Active Substance: HUMAN IMMUNOGLOBULIN G
     Dosage: OTHER FREQUENCY : WEEKLY;?
     Route: 041
  2. PRIVIGEN [Suspect]
     Active Substance: HUMAN IMMUNOGLOBULIN G
     Dosage: OTHER FREQUENCY : WEEKLY;?
     Route: 041

REACTIONS (4)
  - Hypotension [None]
  - Dizziness [None]
  - Hyperhidrosis [None]
  - Infusion related reaction [None]

NARRATIVE: CASE EVENT DATE: 20240907
